FAERS Safety Report 5558527-5 (Version None)
Quarter: 2007Q4

REPORT INFORMATION
  Report Type: 
  Country: None (occurrence: None)
  Receive Date: 20071214
  Receipt Date: 20070831
  Transmission Date: 20080405
  Serious: No
  Sender: FDA-Public Use
  Company Number: US-ABBOTT-07P-163-0415927-00

PATIENT
  Sex: Female
  Weight: 73.094 kg

DRUGS (10)
  1. HUMIRA [Suspect]
     Indication: CROHN'S DISEASE
     Route: 058
     Dates: start: 20070527
  2. HUMIRA [Suspect]
     Dates: start: 20070429, end: 20070513
  3. HUMIRA [Suspect]
     Dates: start: 20070513, end: 20070527
  4. MESALAMINE [Concomitant]
     Indication: CROHN'S DISEASE
     Route: 048
  5. AZATHIOPRINE [Concomitant]
     Indication: CROHN'S DISEASE
     Route: 048
  6. DICYCLOMINE HCL [Concomitant]
     Indication: CROHN'S DISEASE
     Route: 048
  7. PHENERGAN HCL [Concomitant]
     Indication: NAUSEA
     Route: 048
  8. BUDESONIDE [Concomitant]
     Indication: CROHN'S DISEASE
     Route: 048
  9. ZANAFLEX [Concomitant]
     Indication: BACK DISORDER
     Route: 048
  10. VICODIN [Concomitant]
     Indication: PAIN
     Route: 048

REACTIONS (2)
  - IMPAIRED HEALING [None]
  - RASH GENERALISED [None]
